FAERS Safety Report 6467784-2 (Version None)
Quarter: 2009Q4

REPORT INFORMATION
  Report Type: 
  Country: None (occurrence: None)
  Receive Date: 20091202
  Receipt Date: 20091117
  Transmission Date: 20100525
  Serious: Yes (Hospitalization)
  Sender: FDA-Public Use
  Company Number: CA-GENENTECH-294774

PATIENT
  Sex: Male
  Weight: 103.4 kg

DRUGS (1)
  1. RITUXIMAB [Suspect]
     Indication: RHEUMATOID ARTHRITIS
     Dosage: FORM: INFUSION; DOSAGE REGIMEN: DAY 1 AND DAY 15
     Route: 042
     Dates: start: 20091105

REACTIONS (1)
  - RENAL FAILURE [None]
